FAERS Safety Report 7564986-9 (Version None)
Quarter: 2011Q2

REPORT INFORMATION
  Report Type: 
  Country: None (occurrence: None)
  Receive Date: 20110622
  Receipt Date: 20110404
  Transmission Date: 20111010
  Serious: Yes (Death, Other)
  Sender: FDA-Public Use
  Company Number: US-MYLANLABS-2011S1005652

PATIENT
  Age: 30 Year
  Sex: Female
  Weight: 99.79 kg

DRUGS (4)
  1. CLONAZEPAM [Concomitant]
     Dosage: 0.5MG EVERY AM AND 1MG HS
  2. LITHIUM CARBONATE [Concomitant]
     Dosage: 300MG QAM AND 900MG HS
  3. CLOZAPINE [Suspect]
     Route: 048
  4. TRILEPTAL [Concomitant]

REACTIONS (5)
  - DIZZINESS [None]
  - CHEST PAIN [None]
  - DYSPNOEA EXERTIONAL [None]
  - DEATH [None]
  - FALL [None]
